FAERS Safety Report 6111118-X (Version None)
Quarter: 2009Q1

REPORT INFORMATION
  Report Type: 
  Country: None (occurrence: None)
  Receive Date: 20090311
  Receipt Date: 20080609
  Transmission Date: 20090719
  Serious: No
  Sender: FDA-Public Use
  Company Number: US-KINGPHARMUSA00001-K200800662

PATIENT
  Age: 58 Year
  Sex: Female

DRUGS (2)
  1. ALTACE [Suspect]
     Indication: HYPERTENSION
     Dosage: 1.25 MG, SINGLE
     Route: 048
     Dates: start: 20080101, end: 20080101
  2. HORMONE REPLACEMENT THERAPY [Concomitant]
     Dosage: UNK, UNK
     Route: 062

REACTIONS (7)
  - ABDOMINAL PAIN [None]
  - ANGIOEDEMA [None]
  - DIARRHOEA [None]
  - FACE OEDEMA [None]
  - GASTROINTESTINAL OEDEMA [None]
  - TONGUE OEDEMA [None]
  - URTICARIA [None]
